FAERS Safety Report 7019729-4 (Version None)
Quarter: 2010Q3

REPORT INFORMATION
  Report Type: 
  Country: None (occurrence: None)
  Receive Date: 20100929
  Receipt Date: 20100921
  Transmission Date: 20110219
  Serious: Yes (Other)
  Sender: FDA-Public Use
  Company Number: US-BIOGENIDEC-2010BI031917

PATIENT
  Age: 52 Year
  Sex: Female
  Weight: 81 kg

DRUGS (1)
  1. TYSABRI [Suspect]
     Indication: MULTIPLE SCLEROSIS
     Route: 042
     Dates: start: 20100610, end: 20100803

REACTIONS (13)
  - ALANINE AMINOTRANSFERASE INCREASED [None]
  - ANAPHYLACTIC SHOCK [None]
  - ARTHRALGIA [None]
  - ASPARTATE AMINOTRANSFERASE INCREASED [None]
  - ASTHENIA [None]
  - FATIGUE [None]
  - HEADACHE [None]
  - MALAISE [None]
  - NAUSEA [None]
  - PAIN [None]
  - PRURITUS [None]
  - RETCHING [None]
  - VOMITING [None]
